FAERS Safety Report 8515976-0 (Version None)
Quarter: 2012Q3

REPORT INFORMATION
  Report Type: 
  Country: None (occurrence: None)
  Receive Date: 20120717
  Receipt Date: 20080428
  Transmission Date: 20120928
  Serious: Yes (Other)
  Sender: FDA-Public Use
  Company Number: CO-PFIZER INC-2012168134

PATIENT
  Age: 61 Year
  Sex: Male

DRUGS (8)
  1. ACETYLSALICYLIC ACID [Concomitant]
     Dosage: 100 MG, ONCE DAILY
     Route: 048
  2. HYDROCHLOROTHIAZIDE [Concomitant]
     Dosage: 25 MG, ONCE DAILY
     Route: 048
  3. METOPROLOL TARTRATE [Concomitant]
     Dosage: 50 MG, ONCE DAILY
     Route: 048
  4. LIPITOR [Suspect]
     Dosage: 10 MG, ONCE DAILY
     Route: 048
  5. OLMESARTAN MEDOXOMIL AND HYDROCHLOROTHIZIDE [Suspect]
     Dosage: [OLMESARTAN MEDOXOMIL 20 MG]/ [HYDROCHLOROTHIAZIDE 12.5MG] ONCE DAILY
     Route: 048
  6. LOSARTAN [Concomitant]
     Dosage: 50 MG, TWICE DAILY
     Route: 048
  7. FUROSEMIDE [Concomitant]
     Dosage: 40 MG, ONCE DAILY
     Route: 048
  8. LOSARTAN [Concomitant]
     Dosage: 100 MG, ONCE DAILY
     Route: 048

REACTIONS (5)
  - PAIN IN EXTREMITY [None]
  - PYURIA [None]
  - OBESITY [None]
  - ANGIOPATHY [None]
  - EXERCISE LACK OF [None]
